FAERS Safety Report 16003941 (Version 1)
Quarter: 2019Q1

REPORT INFORMATION
  Report Type: Spontaneous
  Country: ES (occurrence: US)
  Receive Date: 20190226
  Receipt Date: 20190226
  Transmission Date: 20190418
  Serious: Yes (Death)
  Sender: FDA-Public Use
  Company Number: ES-IMPAX LABORATORIES, LLC-2019-IPXL-00573

PATIENT

DRUGS (1)
  1. DIGOXIN. [Suspect]
     Active Substance: DIGOXIN
     Indication: CARDIAC FAILURE ACUTE
     Dosage: UNK, MEDIAN DOSE WAS 0.20 MG/DAILY (0.125-0.25)
     Route: 065

REACTIONS (1)
  - Adverse event [Fatal]
